FAERS Safety Report 12589918 (Version 1)
Quarter: 2016Q3

REPORT INFORMATION
  Report Type: Spontaneous
  Country: US (occurrence: US)
  Receive Date: 20160725
  Receipt Date: 20160725
  Transmission Date: 20161109
  Serious: No
  Sender: FDA-Public Use
  Company Number: US-ENDO PHARMACEUTICALS INC.-2016-003397

PATIENT
  Age: 35 Year
  Sex: Female
  Weight: 158.9 kg

DRUGS (3)
  1. HYDROCORTISONE TABLETS [Suspect]
     Active Substance: HYDROCORTISONE
     Route: 048
     Dates: start: 201304, end: 201306
  2. HYDROCORTISONE TABLETS [Suspect]
     Active Substance: HYDROCORTISONE
     Indication: ADDISON^S DISEASE
     Route: 048
     Dates: start: 201303, end: 201304
  3. PEPCID [Concomitant]
     Active Substance: FAMOTIDINE
     Indication: PROPHYLAXIS

REACTIONS (1)
  - Drug ineffective [Unknown]

NARRATIVE: CASE EVENT DATE: 201303
